FAERS Safety Report 6888879-5 (Version None)
Quarter: 2010Q3

REPORT INFORMATION
  Report Type: 
  Country: None (occurrence: None)
  Receive Date: 20100730
  Receipt Date: 20071126
  Transmission Date: 20110219
  Serious: No
  Sender: FDA-Public Use
  Company Number: US-PFIZER INC-2007099646

PATIENT
  Sex: Male

DRUGS (5)
  1. LIPITOR [Suspect]
     Indication: BLOOD CHOLESTEROL INCREASED
  2. ZYRTEC [Suspect]
     Indication: UPPER-AIRWAY COUGH SYNDROME
     Dates: start: 20071123, end: 20071123
  3. ZYRTEC [Suspect]
     Indication: RHINITIS ALLERGIC
  4. ZETIA [Concomitant]
  5. VERAMYST [Concomitant]

REACTIONS (4)
  - DRY MOUTH [None]
  - LISTLESS [None]
  - MUSCLE SPASMS [None]
  - SOMNOLENCE [None]
